FAERS Safety Report 9935170 (Version 4)
Quarter: 2014Q2

REPORT INFORMATION
  Report Type: Spontaneous
  Country: US (occurrence: US)
  Receive Date: 20140228
  Receipt Date: 20140429
  Transmission Date: 20141212
  Serious: Yes (Other)
  Sender: FDA-Public Use
  Company Number: US-JNJFOC-20140218202

PATIENT
  Age: 82 Year
  Sex: Female
  Weight: 52.3 kg

DRUGS (10)
  1. IMBRUVICA [Suspect]
     Indication: MANTLE CELL LYMPHOMA
     Route: 048
     Dates: end: 20140105
  2. IMBRUVICA [Suspect]
     Indication: MANTLE CELL LYMPHOMA
     Dosage: TAPERED UP
     Route: 048
     Dates: start: 20131223
  3. IMBRUVICA [Suspect]
     Indication: MANTLE CELL LYMPHOMA
     Route: 048
     Dates: start: 20140210, end: 20140218
  4. IMBRUVICA [Suspect]
     Indication: MANTLE CELL LYMPHOMA
     Route: 048
     Dates: start: 20140113, end: 20140209
  5. IMBRUVICA [Suspect]
     Indication: MANTLE CELL LYMPHOMA
     Route: 048
     Dates: start: 20140106, end: 20140112
  6. ARTIFICIAL TEARS NOS [Concomitant]
  7. ALPRAZOLAM [Concomitant]
  8. ALLOPURINOL [Concomitant]
  9. DIOVAN [Concomitant]
  10. IRON [Concomitant]

REACTIONS (1)
  - Retinal artery embolism [Recovered/Resolved]
